FAERS Safety Report 9702771 (Version 2)
Quarter: 2013Q4

REPORT INFORMATION
  Report Type: Spontaneous
  Country: US (occurrence: US)
  Receive Date: 20131121
  Receipt Date: 20131216
  Transmission Date: 20140711
  Serious: Yes (Hospitalization)
  Sender: FDA-Public Use
  Company Number: US-GLAXOSMITHKLINE-A1049856A

PATIENT
  Age: 67 Year
  Sex: Male
  Weight: 70 kg

DRUGS (7)
  1. VOTRIENT [Suspect]
     Indication: PRODUCT USED FOR UNKNOWN INDICATION
     Dosage: 200MG PER DAY
     Route: 048
     Dates: start: 20131108
  2. HYDROCODONE + HOMATROPINE SYRUP [Concomitant]
  3. FENTANYL [Concomitant]
  4. PREDNISONE [Concomitant]
  5. NEXIUM [Concomitant]
  6. RESTORIL [Concomitant]
  7. SENOKOT [Concomitant]

REACTIONS (1)
  - Metastatic pain [Recovering/Resolving]
